FAERS Safety Report 16596249 (Version 1)
Quarter: 2019Q3

REPORT INFORMATION
  Report Type: Spontaneous
  Country: FR (occurrence: FR)
  Receive Date: 20190719
  Receipt Date: 20190719
  Transmission Date: 20191004
  Serious: Yes (Hospitalization)
  Sender: FDA-Public Use
  Company Number: FR-TEVA-2019-FR-1079321

PATIENT
  Age: 61 Year
  Sex: Female
  Weight: 38 kg

DRUGS (4)
  1. GABAPENTINE [Suspect]
     Active Substance: GABAPENTIN
     Indication: WRONG DRUG
     Route: 048
     Dates: start: 20190604, end: 20190604
  2. NEULEPTIL [PERICIAZINE] [Suspect]
     Active Substance: PERICIAZINE
     Indication: MEDICATION ERROR
     Route: 048
     Dates: start: 20190604, end: 20190604
  3. DEPAMIDE 300 MG, COMPRIME PELLICULE GASTRO-RESISTANT [Suspect]
     Active Substance: VALPROMIDE
     Indication: MEDICATION ERROR
     Route: 048
     Dates: start: 20190604, end: 20190604
  4. LOXAPAC 25 MG, COMPRIME PELLICULE [Suspect]
     Active Substance: LOXAPINE SUCCINATE
     Indication: WRONG DRUG
     Route: 048
     Dates: start: 20190604, end: 20190604

REACTIONS (3)
  - Tachycardia [Recovering/Resolving]
  - Coma [Recovering/Resolving]
  - Respiratory acidosis [Recovering/Resolving]

NARRATIVE: CASE EVENT DATE: 20190604
